FAERS Safety Report 19032540 (Version 3)
Quarter: 2021Q2

REPORT INFORMATION
  Report Type: Report from Study
  Country: US (occurrence: US)
  Receive Date: 20210319
  Receipt Date: 20210429
  Transmission Date: 20210717
  Serious: Yes (Hospitalization, Other)
  Sender: FDA-Public Use
  Company Number: US-BAYER-2021-083777

PATIENT
  Age: 45 Year
  Sex: Female

DRUGS (3)
  1. STIVARGA [Suspect]
     Active Substance: REGORAFENIB
     Indication: COLORECTAL CANCER
     Dosage: 120 MG DAILY
     Dates: start: 20210226, end: 20210304
  2. STIVARGA [Suspect]
     Active Substance: REGORAFENIB
     Indication: COLORECTAL CANCER
     Dosage: DAILY DOSE 160 MG
     Route: 048
     Dates: start: 20210305, end: 20210401
  3. STIVARGA [Suspect]
     Active Substance: REGORAFENIB
     Indication: COLORECTAL CANCER
     Dosage: 80 MG DAILY FOR 7 DAYS
     Dates: start: 20210219, end: 20210225

REACTIONS (11)
  - Asthenia [Not Recovered/Not Resolved]
  - Dehydration [Unknown]
  - Feeding disorder [Recovering/Resolving]
  - Sepsis [Not Recovered/Not Resolved]
  - Abdominal pain upper [None]
  - Blood potassium decreased [Unknown]
  - Feeding disorder [Not Recovered/Not Resolved]
  - Product dose omission issue [None]
  - Off label use [Not Recovered/Not Resolved]
  - Throat irritation [Not Recovered/Not Resolved]
  - Dysphagia [Recovering/Resolving]

NARRATIVE: CASE EVENT DATE: 20210219
